FAERS Safety Report 5452344-2 (Version None)
Quarter: 2007Q3

REPORT INFORMATION
  Report Type: 
  Country: None (occurrence: None)
  Receive Date: 20070912
  Receipt Date: 20070912
  Transmission Date: 20080115
  Serious: Yes (Other)
  Sender: FDA-Public Use
  Company Number: None

PATIENT
  Sex: Female
  Weight: 86.1834 kg

DRUGS (2)
  1. PROAIR HFA [Suspect]
     Indication: ASTHMA
     Dosage: 2 INHALATIONS P.R.N. PO
     Route: 048
     Dates: start: 20070712, end: 20070911
  2. ADVAIR DISKUS 500/50 [Concomitant]

REACTIONS (1)
  - DRUG EFFECT DECREASED [None]
